FAERS Safety Report 13461339 (Version 1)
Quarter: 2017Q2

REPORT INFORMATION
  Report Type: Spontaneous
  Country: US (occurrence: US)
  Receive Date: 20170420
  Receipt Date: 20170420
  Transmission Date: 20170830
  Serious: Yes (Other)
  Sender: FDA-Public Use
  Company Number: US-BAYER-2017-072777

PATIENT
  Age: 64 Year
  Sex: Female
  Weight: 45 kg

DRUGS (1)
  1. DR. SCHOLLS CORN/CALLUS REMOVER [Suspect]
     Active Substance: SALICYLIC ACID
     Indication: THERAPEUTIC SKIN CARE TOPICAL
     Dosage: 1 DF, QD
     Route: 061
     Dates: start: 201703, end: 20170406

REACTIONS (3)
  - Application site erosion [Not Recovered/Not Resolved]
  - Application site ulcer [Not Recovered/Not Resolved]
  - Application site laceration [Not Recovered/Not Resolved]

NARRATIVE: CASE EVENT DATE: 201703
